FAERS Safety Report 8119585-7 (Version None)
Quarter: 2012Q1

REPORT INFORMATION
  Report Type: 
  Country: None (occurrence: None)
  Receive Date: 20120207
  Receipt Date: 20120201
  Transmission Date: 20120608
  Serious: Yes (Other)
  Sender: FDA-Public Use
  Company Number: PHEH2012US002793

PATIENT
  Sex: Female

DRUGS (2)
  1. OXCARBAZEPINE [Suspect]
     Dosage: 150 MG BID
     Dates: start: 20110101, end: 20111201
  2. ASPIRIN [Concomitant]

REACTIONS (6)
  - DEPRESSION [None]
  - DISTURBANCE IN ATTENTION [None]
  - ABDOMINAL DISCOMFORT [None]
  - HYPERTENSION [None]
  - GAIT DISTURBANCE [None]
  - ANXIETY [None]
